FAERS Safety Report 9189508 (Version 2)
Quarter: 2013Q2

REPORT INFORMATION
  Report Type: Spontaneous
  Country: US (occurrence: US)
  Receive Date: 20130326
  Receipt Date: 20130513
  Transmission Date: 20140414
  Serious: No
  Sender: FDA-Public Use
  Company Number: US-JNJFOC-20130207281

PATIENT
  Age: 27 Year
  Sex: Male

DRUGS (6)
  1. INVEGA SUSTENNA [Suspect]
     Indication: PRODUCT USED FOR UNKNOWN INDICATION
     Route: 030
  2. INVEGA SUSTENNA [Suspect]
     Indication: PRODUCT USED FOR UNKNOWN INDICATION
     Route: 030
     Dates: start: 2010
  3. TEGRETOL XR [Concomitant]
     Indication: BIPOLAR DISORDER
     Route: 065
     Dates: start: 2010
  4. VITAMIN D3 [Concomitant]
     Indication: PRODUCT USED FOR UNKNOWN INDICATION
     Route: 065
     Dates: start: 2012
  5. VISTARIL [Concomitant]
     Indication: RASH
     Route: 065
     Dates: start: 201212
  6. ATIVAN [Concomitant]
     Indication: ANXIETY
     Dosage: UPTO 4 MG DAILY, AS NEEDED
     Route: 065
     Dates: start: 201207

REACTIONS (3)
  - Wrong technique in drug usage process [Recovered/Resolved]
  - Medical device complication [Recovered/Resolved]
  - Inappropriate schedule of drug administration [Unknown]
